FAERS Safety Report 11717536 (Version 1)
Quarter: 2015Q4

REPORT INFORMATION
  Report Type: Spontaneous
  Country: US (occurrence: US)
  Receive Date: 20151110
  Receipt Date: 20151110
  Transmission Date: 20160304
  Serious: Yes (Other)
  Sender: FDA-Public Use
  Company Number: US-TEVA-584958USA

PATIENT

DRUGS (1)
  1. CELECOXIB. [Suspect]
     Active Substance: CELECOXIB
     Indication: ARTHRITIS
     Dosage: 600 MG A DAY
     Route: 048

REACTIONS (5)
  - Mobility decreased [Unknown]
  - Drug ineffective [Unknown]
  - Product substitution issue [Unknown]
  - Pain [Unknown]
  - Abasia [Unknown]

NARRATIVE: CASE EVENT DATE: 20141220
